FAERS Safety Report 7200966-0 (Version None)
Quarter: 2010Q4

REPORT INFORMATION
  Report Type: 
  Country: None (occurrence: None)
  Receive Date: 20101228
  Receipt Date: 20101216
  Transmission Date: 20110411
  Serious: Yes (Hospitalization)
  Sender: FDA-Public Use
  Company Number: IN-ALLERGAN-1016361US

PATIENT
  Age: 61 Year
  Sex: Male
  Weight: 55 kg

DRUGS (4)
  1. BLINDED BOTULINUM TOXIN TYPE A - GENERAL (9060X) [Suspect]
     Indication: NEUROGENIC BLADDER
     Dosage: UNK
     Dates: start: 20100712, end: 20100712
  2. BLINDED PLACEBO [Suspect]
     Indication: NEUROGENIC BLADDER
     Dosage: UNK
     Dates: start: 20100712, end: 20100712
  3. BLINDED BOTULINUM TOXIN TYPE A - GENERAL (9060X) [Suspect]
     Indication: RESPIRATORY DISORDER
     Dosage: UNK
     Dates: start: 20091228, end: 20091228
  4. BLINDED PLACEBO [Suspect]
     Indication: RESPIRATORY DISORDER
     Dosage: UNK
     Dates: start: 20091228, end: 20091228

REACTIONS (2)
  - ABDOMINAL DISTENSION [None]
  - URINARY RETENTION [None]
